FAERS Safety Report 6906202-4 (Version None)
Quarter: 2010Q3

REPORT INFORMATION
  Report Type: 
  Country: None (occurrence: None)
  Receive Date: 20100804
  Receipt Date: 20100726
  Transmission Date: 20110219
  Serious: Yes (Other)
  Sender: FDA-Public Use
  Company Number: US-ROXANE LABORATORIES, INC.-2010-RO-00964RO

PATIENT
  Sex: Male

DRUGS (2)
  1. DIGOXIN [Suspect]
  2. DIGOXIN [Suspect]

REACTIONS (1)
  - VASCULAR GRAFT [None]
